FAERS Safety Report 6331767-3 (Version None)
Quarter: 2009Q3

REPORT INFORMATION
  Report Type: 
  Country: None (occurrence: None)
  Receive Date: 20090826
  Receipt Date: 20090811
  Transmission Date: 20100115
  Serious: Yes (Hospitalization)
  Sender: FDA-Public Use
  Company Number: 235297K09USA

PATIENT
  Age: 44 Year
  Sex: Female
  Weight: 78 kg

DRUGS (21)
  1. REBIF [Suspect]
     Indication: MULTIPLE SCLEROSIS
     Dosage: 44 MCG, 3 IN 1 WEEKS, SUBCUTANEOUS
     Route: 058
     Dates: start: 20080414, end: 20090512
  2. MESTINON (PYRIDOSTIGIME BROMIDE) [Concomitant]
  3. CELLCEPT [Concomitant]
  4. LITHIUM (LITHIUM /0033701/) [Concomitant]
  5. KLONOPIN [Concomitant]
  6. PREDNISONE (PREDNISONE /00044701/) [Concomitant]
  7. IMITREX [Concomitant]
  8. PREVACID [Concomitant]
  9. RESTORIL [Concomitant]
  10. AMANTADINE HCL [Concomitant]
  11. MIRALAX [Concomitant]
  12. REMERON [Concomitant]
  13. FIORICET [Concomitant]
  14. GOLYTELY (GOLYTELY) [Concomitant]
  15. COMBIVENT [Concomitant]
  16. FLONASE [Concomitant]
  17. ZANTAC 150 [Concomitant]
  18. BENTYL [Concomitant]
  19. CELEBREX [Concomitant]
  20. COMPAZINE [Concomitant]
  21. LASIX (FUROSEMIDE /00032601/) [Concomitant]

REACTIONS (7)
  - ANXIETY [None]
  - CONDITION AGGRAVATED [None]
  - DEPRESSION [None]
  - FEAR [None]
  - HALLUCINATIONS, MIXED [None]
  - RELAPSING-REMITTING MULTIPLE SCLEROSIS [None]
  - SUICIDAL IDEATION [None]
